FAERS Safety Report 14919363 (Version 3)
Quarter: 2018Q4

REPORT INFORMATION
  Report Type: Spontaneous
  Country: US (occurrence: US)
  Receive Date: 20180521
  Receipt Date: 20181228
  Transmission Date: 20190204
  Serious: Yes (Other)
  Sender: FDA-Public Use
  Company Number: US-PFIZER INC-2018203067

PATIENT
  Age: 13 Year
  Sex: Male

DRUGS (3)
  1. DOXORUBICIN HCL [Suspect]
     Active Substance: DOXORUBICIN HYDROCHLORIDE
     Indication: OSTEOSARCOMA
     Dosage: 450 MG/M2, CYCLIC (DIVIDED OVER 11 CYCLES, EACH -3 WEEKS IN LENGTH)
  2. IFOSFAMIDE. [Suspect]
     Active Substance: IFOSFAMIDE
     Indication: OSTEOSARCOMA
     Dosage: CYCLIC (62 G/M2, DIVIDED OVER 11 CYCLES, EACH -3 WEEKS IN LENGTH)
  3. CARBOPLATIN. [Suspect]
     Active Substance: CARBOPLATIN
     Indication: OSTEOSARCOMA
     Dosage: 480 MG/M2, CYCLIC (DIVIDED OVER 11 CYCLES, EACH -3 WEEKS IN LENGTH)

REACTIONS (4)
  - Hyponatraemia [Unknown]
  - Carbon dioxide decreased [Unknown]
  - Blood creatinine increased [Unknown]
  - Acute kidney injury [Recovered/Resolved]
